FAERS Safety Report 9795831 (Version 1)
Quarter: 2014Q1

REPORT INFORMATION
  Report Type: Report from Study
  Country: TW (occurrence: TW)
  Receive Date: 20140103
  Receipt Date: 20140103
  Transmission Date: 20141002
  Serious: Yes (Other)
  Sender: FDA-Public Use
  Company Number: TW-ASTELLAS-2013US013610

PATIENT
  Age: 73 Year
  Sex: Female

DRUGS (1)
  1. ERLOTINIB TABLET [Suspect]
     Indication: BRONCHIOLOALVEOLAR CARCINOMA
     Dosage: 150 MG, UID/QD
     Route: 065

REACTIONS (4)
  - Scab [Unknown]
  - Rash papular [Unknown]
  - Rash pustular [Unknown]
  - Alopecia [Unknown]
